FAERS Safety Report 19413386 (Version 1)
Quarter: 2021Q2

REPORT INFORMATION
  Report Type: Spontaneous
  Country: GB (occurrence: GB)
  Receive Date: 20210615
  Receipt Date: 20210615
  Transmission Date: 20210717
  Serious: Yes (Other)
  Sender: FDA-Public Use
  Company Number: GB-JNJFOC-20210619598

PATIENT
  Age: 31 Year
  Sex: Male

DRUGS (1)
  1. REMICADE [Suspect]
     Active Substance: INFLIXIMAB
     Indication: CROHN^S DISEASE
     Route: 042
     Dates: start: 20210607, end: 20210607

REACTIONS (3)
  - Presyncope [Recovered/Resolved]
  - Bradycardia [Unknown]
  - Dizziness [Unknown]

NARRATIVE: CASE EVENT DATE: 20210607
